FAERS Safety Report 7572251-9 (Version None)
Quarter: 2011Q2

REPORT INFORMATION
  Report Type: 
  Country: None (occurrence: None)
  Receive Date: 20110624
  Receipt Date: 20110613
  Transmission Date: 20111010
  Serious: Yes (Hospitalization)
  Sender: FDA-Public Use
  Company Number: PHFR2011GB02553

PATIENT
  Sex: Female

DRUGS (1)
  1. CLOZAPINE [Suspect]
     Indication: SCHIZOPHRENIA
     Route: 048
     Dates: start: 20100520

REACTIONS (4)
  - FALL [None]
  - LOWER LIMB FRACTURE [None]
  - FEMORAL NECK FRACTURE [None]
  - ANKLE FRACTURE [None]
